FAERS Safety Report 14297918 (Version 4)
Quarter: 2018Q1

REPORT INFORMATION
  Report Type: Spontaneous
  Country: US (occurrence: US)
  Receive Date: 20171218
  Receipt Date: 20180306
  Transmission Date: 20180509
  Serious: No
  Sender: FDA-Public Use
  Company Number: US-ELI_LILLY_AND_COMPANY-US201711009912

PATIENT
  Sex: Female

DRUGS (6)
  1. BASAGLAR [Suspect]
     Active Substance: INSULIN GLARGINE
     Indication: PRODUCT USED FOR UNKNOWN INDICATION
     Dosage: 45 U, BID
     Route: 065
     Dates: start: 20171022
  2. BASAGLAR [Suspect]
     Active Substance: INSULIN GLARGINE
     Dosage: 45 U, BID
     Route: 065
     Dates: start: 20171022
  3. BASAGLAR [Suspect]
     Active Substance: INSULIN GLARGINE
     Dosage: 45 U, BID
     Route: 065
     Dates: start: 20171022
  4. NOVOLOG [Concomitant]
     Active Substance: INSULIN ASPART
     Indication: PRODUCT USED FOR UNKNOWN INDICATION
     Dosage: UNK, UNKNOWN
     Route: 065
  5. BASAGLAR [Suspect]
     Active Substance: INSULIN GLARGINE
     Dosage: 60 U, DAILY
     Route: 065
  6. TRADJENTA [Suspect]
     Active Substance: LINAGLIPTIN
     Indication: DIABETES MELLITUS
     Dosage: UNK, UNKNOWN
     Route: 065
     Dates: end: 20180109

REACTIONS (15)
  - Fatigue [Unknown]
  - Incorrect dose administered [Unknown]
  - Scab [Unknown]
  - Pruritus [Recovered/Resolved]
  - Pruritus generalised [Unknown]
  - Dizziness [Unknown]
  - Blood glucose increased [Unknown]
  - Scar [Unknown]
  - Sleep disorder due to general medical condition, insomnia type [Unknown]
  - Erythema [Not Recovered/Not Resolved]
  - Blister [Not Recovered/Not Resolved]
  - Urticaria [Unknown]
  - Skin burning sensation [Unknown]
  - Blister rupture [Unknown]
  - Acne [Unknown]

NARRATIVE: CASE EVENT DATE: 201710
